FAERS Safety Report 6731779-1 (Version None)
Quarter: 2010Q2

REPORT INFORMATION
  Report Type: 
  Country: None (occurrence: None)
  Receive Date: 20100519
  Receipt Date: 20100510
  Transmission Date: 20101027
  Serious: Yes (Other)
  Sender: FDA-Public Use
  Company Number: US-PFIZER INC-2010059333

PATIENT
  Sex: Male

DRUGS (3)
  1. ZOLOFT [Suspect]
     Dosage: UNK
  2. WELLBUTRIN [Suspect]
     Dosage: UNK
  3. BUSPAR [Concomitant]
     Indication: ANXIETY
     Dosage: UNK

REACTIONS (2)
  - ATTENTION DEFICIT/HYPERACTIVITY DISORDER [None]
  - CONSTIPATION [None]
